FAERS Safety Report 16497980 (Version 1)
Quarter: 2019Q2

REPORT INFORMATION
  Report Type: Spontaneous
  Country: CA (occurrence: CA)
  Receive Date: 20190628
  Receipt Date: 20190628
  Transmission Date: 20190711
  Serious: Yes (Hospitalization, Other)
  Sender: FDA-Public Use
  Company Number: CA-WHANIN PHARM. CO., LTD.-2019M1060434

PATIENT
  Age: 24 Year
  Sex: Male

DRUGS (3)
  1. INFLIXIMAB [Concomitant]
     Active Substance: INFLIXIMAB
  2. PREDNISONE. [Concomitant]
     Active Substance: PREDNISONE
  3. CLOZAPINE. [Suspect]
     Active Substance: CLOZAPINE
     Indication: PRODUCT USED FOR UNKNOWN INDICATION
     Dosage: UNK
     Dates: start: 201903

REACTIONS (8)
  - Pyrexia [Unknown]
  - Crohn^s disease [Unknown]
  - Metabolic acidosis [Unknown]
  - Tachycardia [Unknown]
  - Fatigue [Unknown]
  - Haematemesis [Unknown]
  - Night sweats [Unknown]
  - Small intestinal obstruction [Unknown]

NARRATIVE: CASE EVENT DATE: 2019
